FAERS Safety Report 9555570 (Version 3)
Quarter: 2014Q1

REPORT INFORMATION
  Report Type: Report from Study
  Country: US (occurrence: US)
  Receive Date: 20130926
  Receipt Date: 20140114
  Transmission Date: 20141002
  Serious: Yes (Other)
  Sender: FDA-Public Use
  Company Number: US-ALEXION PHARMACEUTICALS INC.-A201302405

PATIENT
  Age: 60 Year
  Sex: Female
  Weight: 82 kg

DRUGS (18)
  1. SOLIRIS [Suspect]
     Indication: HAEMOLYTIC URAEMIC SYNDROME
     Dosage: 900 MG, QW
     Route: 042
     Dates: start: 20130903
  2. SOLIRIS [Suspect]
     Dosage: 1200 MG, Q2W
     Route: 042
     Dates: end: 20131018
  3. PREDNISONE [Concomitant]
     Dosage: 60 MG, UNK
  4. PROVENTIL HFA [Concomitant]
     Indication: WHEEZING
     Dosage: 2 PUFFS, Q6 HOURS
     Route: 055
  5. ASPIRIN [Concomitant]
     Dosage: 81 MG, QD
     Route: 048
  6. LIPITOR [Concomitant]
     Dosage: 80 MG, UNK
     Route: 048
  7. DULCOLAX [Concomitant]
     Indication: CONSTIPATION
     Dosage: 5 MG, QD
     Route: 048
  8. ZYRTEC [Concomitant]
     Dosage: 10 MG, QD
     Route: 048
  9. SINEQUAN [Concomitant]
     Indication: PRURITUS
     Dosage: 10 MG, QD (1-2 PILLS AS NEEDED)
     Route: 048
  10. SINEQUAN [Concomitant]
     Indication: SLEEP DISORDER
  11. LOVENOX [Concomitant]
     Dosage: 120 MG, QD
     Route: 058
  12. FOLVITE [Concomitant]
     Dosage: 5 MG, QD
  13. FISH OIL [Concomitant]
     Dosage: 1200 MG, QD
     Route: 048
  14. PRILOSEC [Concomitant]
     Dosage: 40 MG, QD
  15. PERCOCET [Concomitant]
     Dosage: 1 TAB, Q 6 HOURS AS NEEDED
     Route: 048
  16. MIRALAX [Concomitant]
     Dosage: 1 PACKET, BID, PRN
  17. COUMADINE [Concomitant]
     Dosage: 5 MG, QD, AS DIRECTED
     Route: 048
  18. POTASSIUM CHLORIDE [Concomitant]
     Dosage: 20 MEQ, BID
     Route: 048

REACTIONS (7)
  - Deep vein thrombosis [Recovered/Resolved]
  - Contusion [Not Recovered/Not Resolved]
  - Swelling face [Recovering/Resolving]
  - Abdominal discomfort [Not Recovered/Not Resolved]
  - Pain in extremity [Not Recovered/Not Resolved]
  - Chest pain [Not Recovered/Not Resolved]
  - Fatigue [Recovering/Resolving]
